FAERS Safety Report 7209135-1 (Version None)
Quarter: 2011Q1

REPORT INFORMATION
  Report Type: 
  Country: None (occurrence: None)
  Receive Date: 20110104
  Receipt Date: 20101224
  Transmission Date: 20110831
  Serious: Yes (Hospitalization)
  Sender: FDA-Public Use
  Company Number: NL-MEDIMMUNE-MEDI-0011881

PATIENT
  Sex: Female
  Weight: 5.8 kg

DRUGS (5)
  1. OMEPRAZOLE [Concomitant]
     Dates: end: 20100101
  2. RANITIDINE HYDROCHLORIDE [Concomitant]
     Dates: start: 20100101
  3. FERROFUMERATE [Concomitant]
  4. SYNAGIS [Suspect]
     Route: 030
     Dates: start: 20101224, end: 20101224
  5. SYNAGIS [Suspect]
     Route: 030
     Dates: start: 20100903, end: 20101029

REACTIONS (7)
  - PYREXIA [None]
  - OLIGODIPSIA [None]
  - ERYTHEMA [None]
  - COUGH [None]
  - MICTURITION FREQUENCY DECREASED [None]
  - ILL-DEFINED DISORDER [None]
  - INCREASED UPPER AIRWAY SECRETION [None]
